FAERS Safety Report 23610110 (Version 1)
Quarter: 2024Q1

REPORT INFORMATION
  Report Type: Spontaneous
  Country: EG (occurrence: None)
  Receive Date: 20240307
  Receipt Date: 20240307
  Transmission Date: 20240409
  Serious: Yes (Other)
  Sender: FDA-Public Use
  Company Number: None

PATIENT
  Age: 22 Year
  Sex: Male
  Weight: 55 kg

DRUGS (1)
  1. IMIPRAMINE [Suspect]
     Active Substance: IMIPRAMINE
     Indication: Smoking cessation therapy
     Dosage: 1 FIRSTWEEK 2 LAST ORAL?
     Route: 048
     Dates: start: 20240225, end: 20240308

REACTIONS (4)
  - Taste disorder [None]
  - Erectile dysfunction [None]
  - Testicular disorder [None]
  - Paraesthesia [None]

NARRATIVE: CASE EVENT DATE: 20240305
